FAERS Safety Report 14872185 (Version 2)
Quarter: 2018Q2

REPORT INFORMATION
  Report Type: Spontaneous
  Country: US (occurrence: US)
  Receive Date: 20180509
  Receipt Date: 20180530
  Transmission Date: 20180711
  Serious: Yes (Other)
  Sender: FDA-Public Use
  Company Number: US-MERZ NORTH AMERICA, INC.-18MRZ-00231

PATIENT
  Age: 68 Year
  Sex: Female

DRUGS (3)
  1. XEOMIN [Suspect]
     Active Substance: INCOBOTULINUMTOXINA
     Indication: SKIN COSMETIC PROCEDURE
     Dosage: DOSE 8 AND 4 IU.  TOTAL DOSE 11 IU.
     Dates: start: 20180504, end: 20180504
  2. BENZOCAINE. [Suspect]
     Active Substance: BENZOCAINE
     Indication: LOCAL ANAESTHESIA
     Route: 061
  3. LIDOCAINE. [Suspect]
     Active Substance: LIDOCAINE
     Indication: LOCAL ANAESTHESIA
     Dates: start: 20180504, end: 20180504

REACTIONS (2)
  - Drug hypersensitivity [Recovering/Resolving]
  - Swelling face [Recovering/Resolving]

NARRATIVE: CASE EVENT DATE: 201805
